FAERS Safety Report 5981632-6 (Version None)
Quarter: 2008Q4

REPORT INFORMATION
  Report Type: 
  Country: None (occurrence: None)
  Receive Date: 20081205
  Receipt Date: 20081107
  Transmission Date: 20090506
  Serious: No
  Sender: FDA-Public Use
  Company Number: US-JNJFOC-20081102347

PATIENT
  Sex: Female
  Weight: 56.7 kg

DRUGS (4)
  1. INVEGA [Suspect]
     Indication: MOOD ALTERED
     Route: 048
  2. LAMICTAL [Concomitant]
     Indication: AFFECTIVE DISORDER
     Route: 048
  3. ADDERALL 10 [Concomitant]
     Indication: ATTENTION DEFICIT/HYPERACTIVITY DISORDER
     Route: 048
  4. DEPO-PROVERA [Concomitant]
     Indication: CONTRACEPTION
     Route: 030

REACTIONS (2)
  - EXPIRED DRUG ADMINISTERED [None]
  - HYPERTENSION [None]
